FAERS Safety Report 5119045-1 (Version None)
Quarter: 2006Q3

REPORT INFORMATION
  Report Type: 
  Country: None (occurrence: None)
  Receive Date: 20060927
  Receipt Date: 20060915
  Transmission Date: 20061208
  Serious: Yes (Hospitalization)
  Sender: FDA-Public Use
  Company Number: 2006113175

PATIENT
  Sex: Male

DRUGS (2)
  1. BEXTRA [Suspect]
     Dates: start: 20030714, end: 20031026
  2. VIOXX [Suspect]
     Dates: start: 20020405

REACTIONS (2)
  - CEREBROVASCULAR ACCIDENT [None]
  - VISUAL FIELD DEFECT [None]
